FAERS Safety Report 6904048-4 (Version None)
Quarter: 2010Q3

REPORT INFORMATION
  Report Type: 
  Country: None (occurrence: None)
  Receive Date: 20100804
  Receipt Date: 20090315
  Transmission Date: 20110219
  Serious: No
  Sender: FDA-Public Use
  Company Number: US-PFIZER INC-2008153119

PATIENT
  Sex: Female
  Weight: 108.8 kg

DRUGS (3)
  1. LYRICA [Suspect]
     Indication: FIBROMYALGIA
     Dosage: 50 MG, 3X/DAY
     Route: 048
     Dates: start: 20080901
  2. TOPROL-XL [Concomitant]
  3. BENICAR [Concomitant]

REACTIONS (1)
  - PAIN IN EXTREMITY [None]
